FAERS Safety Report 19219003 (Version 1)
Quarter: 2021Q2

REPORT INFORMATION
  Report Type: Report from Study
  Country: None (occurrence: DO)
  Receive Date: 20210506
  Receipt Date: 20210506
  Transmission Date: 20210717
  Serious: Yes (Hospitalization, Other)
  Sender: FDA-Public Use
  Company Number: DO-ABBVIE-21K-279-3888577-00

PATIENT
  Age: 21 Year
  Sex: Female
  Weight: 61 kg

DRUGS (1)
  1. HUMIRA [Suspect]
     Active Substance: ADALIMUMAB
     Indication: HIDRADENITIS
     Route: 058
     Dates: start: 20210303, end: 20210407

REACTIONS (4)
  - Hidradenitis [Recovered/Resolved]
  - Post procedural cellulitis [Recovering/Resolving]
  - Appendicitis [Recovering/Resolving]
  - Postoperative wound complication [Recovering/Resolving]

NARRATIVE: CASE EVENT DATE: 202104
